FAERS Safety Report 8591991 (Version 4)
Quarter: 2012Q4

REPORT INFORMATION
  Report Type: 
  Country: US (occurrence: US)
  Receive Date: 20120601
  Receipt Date: 20121106
  Transmission Date: 20130627
  Serious: No
  Sender: FDA-Public Use
  Company Number: US-PFIZER INC-2012129499

PATIENT
  Age: 74 Year
  Sex: Female
  Weight: 72.56 kg

DRUGS (8)
  1. DETROL LA [Suspect]
     Indication: OVERACTIVE BLADDER
     Dosage: 4 mg, 1x/day
     Route: 048
     Dates: end: 201201
  2. DETROL LA [Suspect]
     Indication: BLADDER DISORDER
     Dosage: 2 mg, UNK
  3. DETROL LA [Suspect]
     Dosage: 4 mg, UNK
  4. TOVIAZ [Suspect]
     Indication: OVERACTIVE BLADDER
     Dosage: 8 mg, 1x/day
     Route: 048
     Dates: start: 2012
  5. TOVIAZ [Suspect]
     Indication: BLADDER DISORDER
     Dosage: 4 mg, 1x/day
     Route: 048
     Dates: start: 2012, end: 2012
  6. DETROL [Suspect]
     Indication: OVERACTIVE BLADDER
     Dosage: 2 mg, 2x/day
     Route: 048
     Dates: start: 201204
  7. METFORMIN [Concomitant]
     Indication: BLOOD SUGAR INCREASED
     Dosage: 500 mg, UNK
  8. LIPITOR [Concomitant]
     Indication: HIGH CHOLESTEROL
     Dosage: UNK

REACTIONS (6)
  - Urinary incontinence [Unknown]
  - Pollakiuria [Unknown]
  - Insomnia [Unknown]
  - Nocturia [Unknown]
  - Enuresis [Unknown]
  - Drug ineffective [Unknown]
